FAERS Safety Report 7534579-8 (Version None)
Quarter: 2011Q2

REPORT INFORMATION
  Report Type: 
  Country: None (occurrence: None)
  Receive Date: 20110609
  Receipt Date: 20090723
  Transmission Date: 20111010
  Serious: Yes (Death, Hospitalization)
  Sender: FDA-Public Use
  Company Number: PHHY2009AU07101

PATIENT
  Sex: Male

DRUGS (4)
  1. CLOZAPINE [Suspect]
     Dosage: 625 MG, UNK
     Dates: start: 20010516
  2. VENTOLIN HFA [Concomitant]
  3. SERETIDE ^ALLEN + HANBURYS LTD^ [Concomitant]
  4. OLANZAPINE [Concomitant]

REACTIONS (2)
  - RESPIRATORY FAILURE [None]
  - CELLULITIS [None]
